FAERS Safety Report 7767948-1 (Version None)
Quarter: 2011Q3

REPORT INFORMATION
  Report Type: 
  Country: None (occurrence: None)
  Receive Date: 20110922
  Receipt Date: 20100527
  Transmission Date: 20111222
  Serious: Yes (Hospitalization, Other)
  Sender: FDA-Public Use
  Company Number: US-ASTRAZENECA-2010SE33487

PATIENT
  Age: 38 Year
  Sex: Female

DRUGS (8)
  1. AMITRIPTYLINE HCL [Concomitant]
     Dates: start: 20060401
  2. BUSPAR [Concomitant]
     Route: 048
     Dates: start: 20060401
  3. TRAZODONE HYDROCHLORIDE [Concomitant]
     Dates: start: 20070101
  4. CELEXA [Concomitant]
     Dates: start: 20040101
  5. SEROQUEL [Suspect]
     Dosage: 600MG, 400 MG BID
     Route: 048
     Dates: start: 20040101
  6. DEPAKOTE [Concomitant]
     Dosage: 500-1000 MG
     Dates: start: 20040101
  7. WELLBUTRIN SR [Concomitant]
     Dates: start: 20040101
  8. ZOLOFT [Concomitant]
     Dosage: 100 MG 1 AND 1/2 TABLET QHS
     Dates: start: 20040101

REACTIONS (3)
  - DEPRESSION [None]
  - SUICIDAL IDEATION [None]
  - MAJOR DEPRESSION [None]
